FAERS Safety Report 24398864 (Version 1)
Quarter: 2024Q4

REPORT INFORMATION
  Report Type: Spontaneous
  Country: SA (occurrence: SA)
  Receive Date: 20241004
  Receipt Date: 20241004
  Transmission Date: 20250115
  Serious: Yes (Other)
  Sender: BIOMARIN
  Company Number: SA-BIOMARINAP-SA-2024-160950

PATIENT

DRUGS (1)
  1. NAGLAZYME [Suspect]
     Active Substance: GALSULFASE
     Indication: Mucopolysaccharidosis VI
     Route: 065

REACTIONS (3)
  - Neurosurgery [Unknown]
  - Disability [Unknown]
  - Illness [Unknown]

NARRATIVE: CASE EVENT DATE: 20240701
